FAERS Safety Report 4672880-6 (Version None)
Quarter: 2005Q2

REPORT INFORMATION
  Report Type: 
  Country: None (occurrence: None)
  Receive Date: 20050523
  Receipt Date: 20050509
  Transmission Date: 20051028
  Serious: Yes (Death, Life-Threatening, Other)
  Sender: FDA-Public Use
  Company Number: 2005072666

PATIENT
  Age: 70 Year
  Sex: Female

DRUGS (1)
  1. BEXTRA [Suspect]
     Indication: ARTHRITIS
     Dosage: ORAL
     Route: 048

REACTIONS (6)
  - ABDOMINAL DISTENSION [None]
  - INTESTINAL FUNCTIONAL DISORDER [None]
  - INTESTINAL PERFORATION [None]
  - PULSE ABSENT [None]
  - SEPSIS [None]
  - VIRAL INFECTION [None]
